FAERS Safety Report 4509633-5 (Version None)
Quarter: 2004Q4

REPORT INFORMATION
  Report Type: 
  Country: None (occurrence: None)
  Receive Date: 20041124
  Receipt Date: 20041116
  Transmission Date: 20050328
  Serious: Yes (Other)
  Sender: FDA-Public Use
  Company Number: PHEH2004US12439

PATIENT
  Age: 63 Year
  Sex: Female

DRUGS (8)
  1. ESTRADERM [Suspect]
     Indication: HORMONE REPLACEMENT THERAPY
     Dosage: 0.05MG/DAY
     Route: 062
     Dates: start: 20041112
  2. ESTRADERM [Suspect]
     Dosage: 0.05MG/DAY
     Route: 062
     Dates: start: 20040301, end: 20041104
  3. ESTRADERM [Suspect]
     Dosage: 0.1MG/DAY
     Route: 062
     Dates: start: 19890101, end: 20040301
  4. LIPITOR [Concomitant]
  5. LOTREL [Concomitant]
  6. LEXAPRO [Concomitant]
  7. CALCIUM [Concomitant]
  8. PREVACID [Concomitant]

REACTIONS (4)
  - ANXIETY [None]
  - ARTERIAL OCCLUSIVE DISEASE [None]
  - MENOPAUSAL SYMPTOMS [None]
  - NERVOUSNESS [None]
